FAERS Safety Report 9818888 (Version 1)
Quarter: 2013Q4

REPORT INFORMATION
  Report Type: Spontaneous
  Country: US (occurrence: None)
  Receive Date: 20131223
  Receipt Date: 20131223
  Transmission Date: 20140711
  Serious: Yes (Other)
  Sender: FDA-Public Use
  Company Number: 220484

PATIENT
  Sex: Male

DRUGS (3)
  1. PICATO GEL [Suspect]
     Indication: ACTINIC KERATOSIS
     Dosage: 1 IN 1 D
     Route: 061
     Dates: start: 20130207, end: 20130209
  2. LOVASTATIN [Concomitant]
  3. ALEVE [Concomitant]

REACTIONS (4)
  - Application site pain [None]
  - Eyelid oedema [None]
  - Erythema of eyelid [None]
  - Drug administered at inappropriate site [None]
